FAERS Safety Report 8342257-0 (Version None)
Quarter: 2012Q2

REPORT INFORMATION
  Report Type: 
  Country: None (occurrence: None)
  Receive Date: 20120507
  Receipt Date: 20120501
  Transmission Date: 20120825
  Serious: Yes (Hospitalization)
  Sender: FDA-Public Use
  Company Number: GB-TEVA-330957USA

PATIENT
  Sex: Female

DRUGS (3)
  1. THALIDOMIDE [Suspect]
     Route: 048
     Dates: start: 20120313
  2. DEXAMETHASONE [Suspect]
  3. TREANDA [Suspect]
     Route: 042
     Dates: start: 20120313

REACTIONS (1)
  - DYSPNOEA [None]
